FAERS Safety Report 6031755-0 (Version None)
Quarter: 2009Q1

REPORT INFORMATION
  Report Type: 
  Country: None (occurrence: None)
  Receive Date: 20090108
  Receipt Date: 20081230
  Transmission Date: 20090719
  Serious: No
  Sender: FDA-Public Use
  Company Number: US-MERCK-0810USA02701

PATIENT
  Age: 27 Month
  Sex: Male
  Weight: 14 kg

DRUGS (2)
  1. SINGULAIR [Suspect]
     Indication: ASTHMA
     Route: 048
     Dates: start: 20080505, end: 20080527
  2. SINGULAIR [Suspect]
     Indication: HYPERSENSITIVITY
     Route: 048
     Dates: start: 20080505, end: 20080527

REACTIONS (1)
  - ABNORMAL BEHAVIOUR [None]
